FAERS Safety Report 11324194 (Version 2)
Quarter: 2015Q4

REPORT INFORMATION
  Report Type: Report from Study
  Country: JP (occurrence: JP)
  Receive Date: 20150730
  Receipt Date: 20151002
  Transmission Date: 20160304
  Serious: Yes (Death, Life-Threatening, Hospitalization, Other)
  Sender: FDA-Public Use
  Company Number: JP-SHIRE-JP201402693

PATIENT
  Age: 65 Year
  Sex: Female

DRUGS (33)
  1. THYRADIN S [Concomitant]
     Active Substance: LEVOTHYROXINE SODIUM
     Indication: PRODUCT USED FOR UNKNOWN INDICATION
     Dosage: 25 ?G, UNKNOWN
     Route: 048
  2. VELCADE [Suspect]
     Active Substance: BORTEZOMIB
     Indication: PLASMA CELL MYELOMA
     Dosage: UNK, UNKNOWN
     Route: 065
     Dates: start: 201311
  3. ROCALTROL [Concomitant]
     Active Substance: CALCITRIOL
     Dosage: 1.5 ?G, 1X/WEEK
     Route: 042
     Dates: start: 20110225, end: 20110420
  4. ROCALTROL [Concomitant]
     Active Substance: CALCITRIOL
     Dosage: 3.0 ?G, 1X/WEEK
     Route: 042
     Dates: start: 20110422, end: 20111017
  5. OMEPRAL                            /00661201/ [Concomitant]
     Active Substance: OMEPRAZOLE
     Indication: PRODUCT USED FOR UNKNOWN INDICATION
     Dosage: 10 MG, UNKNOWN
     Route: 048
  6. DIALEAD [Concomitant]
     Indication: HYPOTENSION
     Dosage: 10 MG, UNKNOWN
     Route: 048
  7. ALESION [Concomitant]
     Active Substance: EPINASTINE HYDROCHLORIDE
     Indication: PRODUCT USED FOR UNKNOWN INDICATION
     Dosage: 20 MG (SINGLE USE), UNKNOWN
     Route: 048
  8. ROCALTROL [Concomitant]
     Active Substance: CALCITRIOL
     Dosage: 1.5 ?G, 1X/WEEK
     Route: 042
     Dates: start: 20100409, end: 20101117
  9. ROCALTROL [Concomitant]
     Active Substance: CALCITRIOL
     Dosage: 1.5 ?G, 1X/WEEK
     Route: 042
     Dates: start: 20111019, end: 20131009
  10. ROCALTROL [Concomitant]
     Active Substance: CALCITRIOL
     Dosage: 2.5 ?G, 1X/WEEK
     Route: 042
     Dates: start: 20140124, end: 20140604
  11. FUROSEMIDE. [Concomitant]
     Active Substance: FUROSEMIDE
     Indication: POLYURIA
     Dosage: 40 MG, UNKNOWN
     Route: 048
  12. METHYCOBAL [Concomitant]
     Active Substance: METHYLCOBALAMIN
     Indication: PRODUCT USED FOR UNKNOWN INDICATION
     Dosage: 1.5 MG, UNKNOWN
     Route: 048
  13. PROMAC                             /01312301/ [Concomitant]
     Active Substance: NITROFURANTOIN
     Indication: PRODUCT USED FOR UNKNOWN INDICATION
     Dosage: 150 MG, UNKNOWN
     Route: 048
  14. CALTAN [Concomitant]
     Active Substance: CALCIUM CARBONATE
     Dosage: 2500 MG, UNKNOWN
     Route: 048
     Dates: start: 20140129
  15. ROCALTROL [Concomitant]
     Active Substance: CALCITRIOL
     Dosage: 1.0 ?G, 1X/WEEK
     Route: 042
     Dates: start: 20101119, end: 20110221
  16. ONON [Concomitant]
     Active Substance: PRANLUKAST
     Indication: PRODUCT USED FOR UNKNOWN INDICATION
     Dosage: 225 MG, UNKNOWN
     Route: 048
  17. 405 (LANTHANUM CARBONATE) [Suspect]
     Active Substance: LANTHANUM CARBONATE
     Dosage: 1250 MG/DAY
     Route: 048
     Dates: start: 20120613, end: 20141017
  18. SENNOSIDE                          /00571901/ [Concomitant]
     Active Substance: SENNOSIDES A AND B
     Indication: PRODUCT USED FOR UNKNOWN INDICATION
     Dosage: 24 MG, UNKNOWN
     Route: 048
  19. CALTAN [Concomitant]
     Active Substance: CALCIUM CARBONATE
     Dosage: 4500 MG, UNKNOWN
     Route: 048
     Dates: start: 20120606, end: 20131001
  20. ROCALTROL [Concomitant]
     Active Substance: CALCITRIOL
     Indication: PRODUCT USED FOR UNKNOWN INDICATION
     Dosage: 2.5 ?G, 1X/WEEK
     Route: 042
     Dates: start: 20070710, end: 20100407
  21. ROCALTROL [Concomitant]
     Active Substance: CALCITRIOL
     Dosage: 1.5 ?G, 1X/WEEK
     Route: 048
     Dates: start: 20140811
  22. MERISLON [Concomitant]
     Active Substance: BETAHISTINE MESILATE
     Indication: PRODUCT USED FOR UNKNOWN INDICATION
     Dosage: 18 MG, UNKNOWN
     Route: 048
  23. MYSLEE [Concomitant]
     Active Substance: ZOLPIDEM TARTRATE
     Indication: PRODUCT USED FOR UNKNOWN INDICATION
     Dosage: 10 MG, UNKNOWN
     Route: 048
  24. SOLANAX [Concomitant]
     Active Substance: ALPRAZOLAM
     Indication: PRODUCT USED FOR UNKNOWN INDICATION
     Dosage: 0.2 MG, UNKNOWN
     Route: 048
  25. EPOGIN [Concomitant]
     Indication: PRODUCT USED FOR UNKNOWN INDICATION
     Dosage: 3000 IU, UNKNOWN
     Route: 042
  26. CALTAN [Concomitant]
     Active Substance: CALCIUM CARBONATE
     Indication: HYPERPHOSPHATAEMIA
     Dosage: 3000 MG, UNKNOWN
     Route: 048
     Dates: start: 20070726, end: 20120605
  27. CALTAN [Concomitant]
     Active Substance: CALCIUM CARBONATE
     Dosage: 3000 MG, UNKNOWN
     Route: 048
     Dates: start: 20131002, end: 20131022
  28. ROCALTROL [Concomitant]
     Active Substance: CALCITRIOL
     Dosage: 0.5 ?G, 1X/WEEK
     Route: 042
     Dates: start: 20140606, end: 20140808
  29. EPOGIN [Concomitant]
     Dosage: 1500 IU, UNKNOWN
     Route: 042
  30. CALTAN [Concomitant]
     Active Substance: CALCIUM CARBONATE
     Dosage: 1500 MG, UNKNOWN
     Route: 048
     Dates: start: 20131023, end: 20140128
  31. MEVALOTIN [Concomitant]
     Active Substance: PRAVASTATIN SODIUM
     Indication: PRODUCT USED FOR UNKNOWN INDICATION
     Dosage: 5 MG, UNKNOWN
     Route: 048
  32. SELBEX [Concomitant]
     Active Substance: TEPRENONE
     Indication: PRODUCT USED FOR UNKNOWN INDICATION
     Dosage: 150 MG, UNKNOWN
     Route: 048
  33. MYONAL                             /00287502/ [Concomitant]
     Active Substance: EPERISONE HYDROCHLORIDE
     Indication: PRODUCT USED FOR UNKNOWN INDICATION
     Dosage: 100 MG, UNKNOWN
     Route: 048

REACTIONS (6)
  - Pelvic neoplasm [Recovered/Resolved]
  - Death [Fatal]
  - Plasma cell myeloma [Not Recovered/Not Resolved]
  - Cancer pain [Unknown]
  - Pneumonia [Recovered/Resolved]
  - Transitional cell carcinoma [Unknown]

NARRATIVE: CASE EVENT DATE: 20130409
